FAERS Safety Report 11082487 (Version 1)
Quarter: 2015Q2

REPORT INFORMATION
  Report Type: Spontaneous
  Country: BE (occurrence: BE)
  Receive Date: 20150501
  Receipt Date: 20150501
  Transmission Date: 20150821
  Serious: Yes (Death)
  Sender: FDA-Public Use
  Company Number: BE-JNJFOC-20150423491

PATIENT
  Age: 73 Year
  Sex: Male

DRUGS (2)
  1. CORTICOSTEROID UNSPECIFIED [Concomitant]
     Active Substance: UNSPECIFIED INGREDIENT
  2. IMBRUVICA [Suspect]
     Active Substance: IBRUTINIB
     Indication: CHRONIC LYMPHOCYTIC LEUKAEMIA
     Route: 048

REACTIONS (1)
  - Cerebral infarction [Fatal]
